FAERS Safety Report 22081034 (Version 1)
Quarter: 2023Q1

REPORT INFORMATION
  Report Type: Spontaneous
  Country: CA (occurrence: CA)
  Receive Date: 20230309
  Receipt Date: 20230309
  Transmission Date: 20230418
  Serious: Yes (Other)
  Sender: FDA-Public Use
  Company Number: CA-ANIPHARMA-2023-CA-000504

PATIENT
  Age: 61 Year
  Sex: Female
  Weight: 78 kg

DRUGS (6)
  1. CANDESARTAN CILEXETIL [Suspect]
     Active Substance: CANDESARTAN CILEXETIL
     Indication: Product used for unknown indication
     Dosage: 8 MG DAILY
     Route: 048
  2. CARBOPLATIN [Suspect]
     Active Substance: CARBOPLATIN
     Route: 065
  3. CYTOXAN [Suspect]
     Active Substance: CYCLOPHOSPHAMIDE
     Route: 065
  4. DOXORUBICIN HYDROCHLORIDE [Suspect]
     Active Substance: DOXORUBICIN HYDROCHLORIDE
     Route: 065
  5. PEMBROLIZUMAB [Suspect]
     Active Substance: PEMBROLIZUMAB
     Dosage: 200 MG Q3WK
     Route: 042
  6. TAXOL [Suspect]
     Active Substance: PACLITAXEL
     Route: 065

REACTIONS (18)
  - Hyperthyroidism [Unknown]
  - Hypothyroidism [Unknown]
  - Malaise [Unknown]
  - Nausea [Unknown]
  - Neuropathy peripheral [Unknown]
  - Pain [Unknown]
  - Product use issue [Unknown]
  - Somnolence [Unknown]
  - Thyroid disorder [Unknown]
  - Weight fluctuation [Unknown]
  - Anxiety [Unknown]
  - Central venous catheterisation [Unknown]
  - Cystitis [Unknown]
  - Decreased appetite [Unknown]
  - Depressed mood [Unknown]
  - Dyspepsia [Unknown]
  - Fatigue [Unknown]
  - Gait disturbance [Unknown]
